FAERS Safety Report 8183016-1 (Version None)
Quarter: 2012Q1

REPORT INFORMATION
  Report Type: 
  Country: None (occurrence: None)
  Receive Date: 20120305
  Receipt Date: 20120229
  Transmission Date: 20120608
  Serious: Yes (Hospitalization)
  Sender: FDA-Public Use
  Company Number: RO-AMGEN-ROUSP2012013488

PATIENT
  Age: 60 Year
  Sex: Male
  Weight: 60 kg

DRUGS (7)
  1. CISPLATIN [Suspect]
     Dosage: 120 MG, PER CHEMO REGIM
     Dates: start: 20120207
  2. FLUOROURACIL [Concomitant]
  3. TAXOTERE [Suspect]
     Dosage: 120 MG, PER CHEMO REGIM
     Route: 042
     Dates: start: 20120207, end: 20120207
  4. FLUOROURACIL [Suspect]
     Dosage: 1250 MG, 5 TIMES/WK
     Dates: start: 20120206, end: 20120210
  5. TAXOTERE [Concomitant]
  6. NEULASTA [Suspect]
     Indication: PRODUCT USED FOR UNKNOWN INDICATION
     Dosage: 6 MG, AFTER CHEMO
     Route: 058
     Dates: start: 20120211
  7. CISPLATIN [Concomitant]

REACTIONS (3)
  - ANAEMIA [None]
  - LEUKOPENIA [None]
  - THROMBOCYTOPENIA [None]
